FAERS Safety Report 7801196-1 (Version None)
Quarter: 2011Q4

REPORT INFORMATION
  Report Type: 
  Country: None (occurrence: None)
  Receive Date: 20111007
  Receipt Date: 20110930
  Transmission Date: 20120403
  Serious: No
  Sender: FDA-Public Use
  Company Number: US-BIOGENIDEC-2011BI037724

PATIENT
  Age: 47 Year
  Sex: Female

DRUGS (3)
  1. TYSABRI [Suspect]
     Route: 042
     Dates: start: 20070619, end: 20080129
  2. TYSABRI [Suspect]
     Route: 042
     Dates: start: 20090624, end: 20100819
  3. TYSABRI [Suspect]
     Indication: MULTIPLE SCLEROSIS
     Route: 042
     Dates: start: 20110707

REACTIONS (5)
  - FATIGUE [None]
  - GROIN PAIN [None]
  - HEADACHE [None]
  - ASTHENIA [None]
  - ARTHRALGIA [None]
